FAERS Safety Report 8484552-0 (Version None)
Quarter: 2012Q3

REPORT INFORMATION
  Report Type: 
  Country: None (occurrence: None)
  Receive Date: 20120703
  Receipt Date: 20120627
  Transmission Date: 20120928
  Serious: Yes (Hospitalization)
  Sender: FDA-Public Use
  Company Number: US-PFIZER INC-2012155395

PATIENT
  Sex: Female
  Weight: 93.424 kg

DRUGS (8)
  1. VIBRAMYCIN [Suspect]
     Indication: SINUSITIS
     Dosage: UNK, 1X/DAY
     Route: 048
     Dates: end: 20120401
  2. AMBIEN [Concomitant]
     Dosage: UNK
  3. CELANDINE EXTRACT [Concomitant]
     Dosage: UNK
  4. BENADRYL [Concomitant]
     Dosage: UNK
  5. DOXYCYCLINE [Suspect]
     Indication: LYME DISEASE
     Dosage: UNK
     Route: 048
     Dates: start: 20120601, end: 20120601
  6. TRAZODONE [Concomitant]
     Indication: DEPRESSION
     Dosage: 100 MG, UNK
  7. SYNTHROID [Concomitant]
     Dosage: 150 UG, UNK
  8. VITAMIN D [Concomitant]
     Dosage: UNK

REACTIONS (7)
  - NASOPHARYNGITIS [None]
  - ASTHENIA [None]
  - FATIGUE [None]
  - VOMITING [None]
  - ABDOMINAL DISCOMFORT [None]
  - LYME DISEASE [None]
  - ULCER [None]
